FAERS Safety Report 19823453 (Version 1)
Quarter: 2021Q3

REPORT INFORMATION
  Report Type: Spontaneous
  Country: FR (occurrence: FR)
  Receive Date: 20210913
  Receipt Date: 20210913
  Transmission Date: 20211014
  Serious: Yes (Other)
  Sender: FDA-Public Use
  Company Number: NVSC2021FR203398

PATIENT
  Age: 1 Year
  Sex: Male
  Weight: 11 kg

DRUGS (2)
  1. AMOXICILLINE ACIDE CLAVULANIQUE SANDOZ 100 MG/12,5 MG PAR ML ENFANTS, [Suspect]
     Active Substance: AMOXICILLIN\CLAVULANATE POTASSIUM
     Indication: STAPHYLOCOCCAL IMPETIGO
     Dosage: 100 MG/KG, QD
     Route: 041
     Dates: start: 20210803, end: 20210806
  2. DALACINE [Suspect]
     Active Substance: CLINDAMYCIN
     Indication: STAPHYLOCOCCAL IMPETIGO
     Dosage: 40 MG/KG, QD
     Route: 041
     Dates: start: 20210804, end: 20210806

REACTIONS (3)
  - Hepatic cytolysis [Recovered/Resolved]
  - Neutropenia [Recovered/Resolved]
  - Rash maculo-papular [Recovered/Resolved]

NARRATIVE: CASE EVENT DATE: 20210805
